FAERS Safety Report 17514838 (Version 1)
Quarter: 2020Q1

REPORT INFORMATION
  Report Type: Spontaneous
  Country: CA (occurrence: CA)
  Receive Date: 20200309
  Receipt Date: 20200309
  Transmission Date: 20200409
  Serious: Yes (Other)
  Sender: FDA-Public Use
  Company Number: CA-PFIZER INC-2020095562

PATIENT
  Sex: Male

DRUGS (5)
  1. CORTEF [Suspect]
     Active Substance: HYDROCORTISONE
     Dosage: 30 MG, UNK
  2. CORTEF [Suspect]
     Active Substance: HYDROCORTISONE
     Dosage: 50 MG, 2X/DAY
  3. CORTEF [Suspect]
     Active Substance: HYDROCORTISONE
     Indication: ADRENAL INSUFFICIENCY
     Dosage: 20 MG, UNK
  4. CORTEF [Suspect]
     Active Substance: HYDROCORTISONE
     Dosage: 45 MG, UNK
  5. CORTEF [Suspect]
     Active Substance: HYDROCORTISONE
     Dosage: 100 MG, DAILY (35-35-30)

REACTIONS (14)
  - Colitis ulcerative [Unknown]
  - Injury [Unknown]
  - Pain [Unknown]
  - Hypersomnia [Recovered/Resolved]
  - Influenza [Unknown]
  - Renal disorder [Unknown]
  - Clostridium difficile infection [Unknown]
  - Fatigue [Unknown]
  - Asthenia [Unknown]
  - Malaise [Unknown]
  - Weight increased [Recovering/Resolving]
  - Dyspnoea [Unknown]
  - Hypertension [Recovering/Resolving]
  - Drug level increased [Recovering/Resolving]
